FAERS Safety Report 9495986 (Version 2)
Quarter: 2014Q1

REPORT INFORMATION
  Report Type: Spontaneous
  Country: US (occurrence: US)
  Receive Date: 20130904
  Receipt Date: 20140120
  Transmission Date: 20141002
  Serious: Yes (Hospitalization)
  Sender: FDA-Public Use
  Company Number: US-BIOGENIDEC-2013BI078292

PATIENT
  Sex: Female

DRUGS (3)
  1. AVONEX [Suspect]
     Indication: MULTIPLE SCLEROSIS
     Route: 030
  2. AVONEX [Suspect]
     Indication: MULTIPLE SCLEROSIS
     Route: 030
     Dates: start: 20020529, end: 201302
  3. AVONEX [Suspect]
     Indication: MULTIPLE SCLEROSIS
     Route: 030
     Dates: start: 20131025

REACTIONS (6)
  - Arthropathy [Recovered/Resolved]
  - Pulmonary embolism [Recovered/Resolved]
  - Vascular injury [Recovered/Resolved]
  - Cardiac disorder [Unknown]
  - Chest pain [Unknown]
  - Dyspepsia [Recovered/Resolved]
